FAERS Safety Report 8287011-3 (Version None)
Quarter: 2012Q2

REPORT INFORMATION
  Report Type: 
  Country: None (occurrence: None)
  Receive Date: 20120416
  Receipt Date: 20120406
  Transmission Date: 20120825
  Serious: Yes (Hospitalization)
  Sender: FDA-Public Use
  Company Number: US-ASTRAZENECA-2012SE18197

PATIENT
  Age: 62 Year
  Sex: Female

DRUGS (5)
  1. HUMULIN INSULIN [Concomitant]
  2. NOVOLOG [Concomitant]
     Dosage: 4 UNITS EVERY DAY
  3. LISINOPRIL [Suspect]
     Route: 048
  4. ANOTHER CHOLESTEROL MEDICINE [Concomitant]
  5. CRESTOR [Suspect]
     Route: 048

REACTIONS (6)
  - BLOOD PRESSURE INCREASED [None]
  - MALAISE [None]
  - PAIN [None]
  - CORONARY ARTERY OCCLUSION [None]
  - BLOOD GLUCOSE INCREASED [None]
  - ASTHENIA [None]
